FAERS Safety Report 22173744 (Version 1)
Quarter: 2023Q2

REPORT INFORMATION
  Report Type: Spontaneous
  Country: CA (occurrence: CA)
  Receive Date: 20230404
  Receipt Date: 20230404
  Transmission Date: 20230722
  Serious: Yes (Death)
  Sender: FDA-Public Use
  Company Number: CA-KARYOPHARM-2022KPT001130

PATIENT

DRUGS (4)
  1. XPOVIO [Suspect]
     Active Substance: SELINEXOR
     Indication: Plasma cell myeloma
     Dosage: 100 MG, WEEKLY X 5 WEEKS
     Route: 048
     Dates: start: 20220913
  2. DEXAMETHASONE [Concomitant]
     Active Substance: DEXAMETHASONE
  3. DARATUMUMAB [Concomitant]
     Active Substance: DARATUMUMAB
  4. NINLARO [Concomitant]
     Active Substance: IXAZOMIB CITRATE

REACTIONS (5)
  - Plasma cell myeloma [Fatal]
  - Neuralgia [Unknown]
  - Peripheral swelling [Recovering/Resolving]
  - Insomnia [Unknown]
  - Fatigue [Unknown]

NARRATIVE: CASE EVENT DATE: 20220901
